FAERS Safety Report 23457543 (Version 3)
Quarter: 2024Q2

REPORT INFORMATION
  Report Type: Report from Study
  Country: JP (occurrence: JP)
  Receive Date: 20240130
  Receipt Date: 20240409
  Transmission Date: 20240715
  Serious: Yes (Death)
  Sender: FDA-Public Use
  Company Number: JP-ALNYLAM PHARMACEUTICALS, INC.-ALN-2024-000568

PATIENT

DRUGS (12)
  1. AMVUTTRA [Suspect]
     Active Substance: VUTRISIRAN
     Indication: Hereditary neuropathic amyloidosis
     Dosage: 25 MILLIGRAM
     Route: 058
     Dates: start: 20221228, end: 20230913
  2. VITAMINS [Concomitant]
     Active Substance: VITAMINS
     Indication: Vitamin supplementation
     Dosage: 1 GRAM
     Route: 048
     Dates: end: 20231118
  3. TERBINAFINE [Concomitant]
     Active Substance: TERBINAFINE
     Indication: Dermatophytosis of nail
     Dosage: 1 DOSAGE FORM
     Route: 048
     Dates: end: 20231108
  4. ELIQUIS [Concomitant]
     Active Substance: APIXABAN
     Indication: Hereditary neuropathic amyloidosis
     Dosage: 2 DOSAGE FORM
     Route: 048
     Dates: end: 20231108
  5. SILODOSIN OD [Concomitant]
     Indication: Hereditary neuropathic amyloidosis
     Dosage: 2 DOSAGE FORM
     Route: 048
     Dates: end: 20231108
  6. AZOSEMIDE [Concomitant]
     Active Substance: AZOSEMIDE
     Indication: Hereditary neuropathic amyloidosis
     Dosage: 0.5 DOSAGE FORM
     Route: 048
     Dates: end: 20231108
  7. TOLVAPTAN [Concomitant]
     Active Substance: TOLVAPTAN
     Indication: Hereditary neuropathic amyloidosis
     Dosage: 0.5 DOSAGE FORM
     Route: 048
     Dates: end: 20231108
  8. JARDIANCE [Concomitant]
     Active Substance: EMPAGLIFLOZIN
     Indication: Hereditary neuropathic amyloidosis
     Dosage: 1 DOSAGE FORM
     Route: 048
     Dates: end: 20231108
  9. FEBUXOSTAT [Concomitant]
     Active Substance: FEBUXOSTAT
     Indication: Hyperuricaemia
     Dosage: 1 DOSAGE FORM
     Route: 048
     Dates: end: 20231108
  10. LANSOPRAZOLE [Concomitant]
     Active Substance: LANSOPRAZOLE
     Indication: Hereditary neuropathic amyloidosis
     Dosage: 1 DOSAGE FORM
     Route: 048
     Dates: end: 20231108
  11. NEUROTROPIN [Concomitant]
     Active Substance: NEUROTROPIN
     Indication: Hereditary neuropathic amyloidosis
     Dosage: 4 DOSAGE FORM
     Route: 048
     Dates: end: 20231108
  12. LIMAPROST [Concomitant]
     Active Substance: LIMAPROST
     Indication: Hereditary neuropathic amyloidosis
     Dosage: 3 DOSAGE FORM
     Route: 048
     Dates: end: 20231108

REACTIONS (1)
  - Disease progression [Fatal]

NARRATIVE: CASE EVENT DATE: 20231108
